FAERS Safety Report 4725740-6 (Version None)
Quarter: 2005Q3

REPORT INFORMATION
  Report Type: 
  Country: None (occurrence: None)
  Receive Date: 20050722
  Receipt Date: 20050722
  Transmission Date: 20060218
  Serious: Yes (Life-Threatening)
  Sender: FDA-Public Use
  Company Number: None

PATIENT
  Age: 55 Year
  Sex: Male

DRUGS (3)
  1. MIDAZOLAM HCL [Suspect]
     Indication: BIOPSY
  2. MIDAZOLAM HCL [Suspect]
     Indication: BRONCHOALVEOLAR LAVAGE
  3. MIDAZOLAM HCL [Suspect]
     Indication: BRONCHOSCOPY

REACTIONS (7)
  - DYSPNOEA [None]
  - HAEMOPTYSIS [None]
  - INTERSTITIAL LUNG DISEASE [None]
  - PROCEDURAL COMPLICATION [None]
  - PYREXIA [None]
  - RESPIRATORY FAILURE [None]
  - SEDATION [None]
